FAERS Safety Report 12424503 (Version 1)
Quarter: 2016Q2

REPORT INFORMATION
  Report Type: Spontaneous
  Country: SA (occurrence: None)
  Receive Date: 20160531
  Receipt Date: 20160531
  Transmission Date: 20160815
  Serious: Yes (Other)
  Sender: FDA-Public Use
  Company Number: None

PATIENT
  Age: 50 Year
  Sex: Male
  Weight: 75 kg

DRUGS (1)
  1. NPH INSULIN [Suspect]
     Active Substance: INSULIN BEEF
     Indication: DIABETES MELLITUS INADEQUATE CONTROL
     Route: 058

REACTIONS (3)
  - Syncope [None]
  - Injection site discolouration [None]
  - Flushing [None]

NARRATIVE: CASE EVENT DATE: 20060507
